FAERS Safety Report 9376621 (Version 1)
Quarter: 2013Q3

REPORT INFORMATION
  Report Type: Spontaneous
  Country: US (occurrence: US)
  Receive Date: 20130701
  Receipt Date: 20130701
  Transmission Date: 20140515
  Serious: No
  Sender: FDA-Public Use
  Company Number: US-009507513-1306USA012543

PATIENT
  Sex: Female

DRUGS (1)
  1. NUVARING [Suspect]
     Dosage: .015/.12 MG 3 STANDARD DOSE S OF 1
     Route: 067
     Dates: start: 201301

REACTIONS (3)
  - Vaginal discharge [Unknown]
  - Vaginal odour [Unknown]
  - Device breakage [Unknown]
